FAERS Safety Report 12926713 (Version 1)
Quarter: 2016Q4

REPORT INFORMATION
  Report Type: Spontaneous
  Country: US (occurrence: US)
  Receive Date: 20161109
  Receipt Date: 20161109
  Transmission Date: 20170207
  Serious: No
  Sender: FDA-Public Use
  Company Number: US-MISSION PHARMACAL COMPANY-1059385

PATIENT
  Age: 55 Year
  Sex: Female

DRUGS (1)
  1. THIOLA [Suspect]
     Active Substance: TIOPRONIN
     Indication: CYSTINURIA
     Route: 065
     Dates: start: 20151124

REACTIONS (6)
  - Proteinuria [None]
  - Peripheral swelling [Unknown]
  - Oedema peripheral [Unknown]
  - Abnormal weight gain [Unknown]
  - Protein urine present [Unknown]
  - Weight increased [None]
